FAERS Safety Report 17021659 (Version 1)
Quarter: 2019Q4

REPORT INFORMATION
  Report Type: Spontaneous
  Country: US (occurrence: US)
  Receive Date: 20191007
  Receipt Date: 20191007
  Transmission Date: 20200122
  Serious: Yes (Other)
  Sender: FDA-Public Use
  Company Number: None

PATIENT
  Age: 39 Year
  Sex: Female
  Weight: 115 kg

DRUGS (3)
  1. 0.9% SOD CHLOR 250ML [Suspect]
     Active Substance: SODIUM CHLORIDE
     Indication: COLITIS ULCERATIVE
     Dates: start: 20190909
  2. REMICADE [Suspect]
     Active Substance: INFLIXIMAB
     Indication: COLITIS ULCERATIVE
     Dosage: ?          OTHER FREQUENCY:Q8WKS;?
     Route: 042
     Dates: start: 20180714
  3. ENTYVIO [Concomitant]
     Active Substance: VEDOLIZUMAB

REACTIONS (2)
  - Skin discolouration [None]
  - Hypoaesthesia oral [None]

NARRATIVE: CASE EVENT DATE: 20190923
